FAERS Safety Report 8719987 (Version 2)
Quarter: 2013Q4

REPORT INFORMATION
  Report Type: Spontaneous
  Country: US (occurrence: US)
  Receive Date: 20120813
  Receipt Date: 20131031
  Transmission Date: 20140711
  Serious: No
  Sender: FDA-Public Use
  Company Number: US-009507513-2012SP025073

PATIENT
  Age: 72 Year
  Sex: Female
  Weight: 71.2 kg

DRUGS (1)
  1. MIRALAX [Suspect]
     Indication: CONSTIPATION
     Dosage: 17 G, QD
     Route: 048
     Dates: start: 20120430

REACTIONS (4)
  - Abdominal distension [Unknown]
  - Flatulence [Unknown]
  - Nausea [Unknown]
  - Drug ineffective [Unknown]
